FAERS Safety Report 17706515 (Version 2)
Quarter: 2020Q2

REPORT INFORMATION
  Report Type: Spontaneous
  Country: US (occurrence: US)
  Receive Date: 20200424
  Receipt Date: 20200427
  Transmission Date: 20200714
  Serious: Yes (Hospitalization)
  Sender: FDA-Public Use
  Company Number: US-JNJFOC-20200428554

PATIENT
  Sex: Male
  Weight: 90.35 kg

DRUGS (6)
  1. XARELTO [Suspect]
     Active Substance: RIVAROXABAN
     Indication: PULMONARY EMBOLISM
     Route: 048
     Dates: start: 2018
  2. NICOTINE MINI [Concomitant]
     Active Substance: NICOTINE
  3. HYDROCODONE [Concomitant]
     Active Substance: HYDROCODONE
  4. ASPRIN [Concomitant]
     Active Substance: ASPIRIN
  5. XARELTO [Suspect]
     Active Substance: RIVAROXABAN
     Indication: DEEP VEIN THROMBOSIS
  6. NICOTINE. [Concomitant]
     Active Substance: NICOTINE

REACTIONS (2)
  - Thrombosis [Unknown]
  - Pulmonary embolism [Unknown]
